FAERS Safety Report 25501852 (Version 1)
Quarter: 2025Q3

REPORT INFORMATION
  Report Type: Spontaneous
  Country: IL (occurrence: IL)
  Receive Date: 20250702
  Receipt Date: 20250702
  Transmission Date: 20251021
  Serious: Yes (Death, Hospitalization, Other)
  Sender: NOVITIUM PHARMA
  Company Number: IL-NOVITIUMPHARMA-2025ILNVP01486

PATIENT
  Age: 71 Year
  Sex: Female

DRUGS (7)
  1. DEXAMETHASONE [Suspect]
     Active Substance: DEXAMETHASONE
     Indication: Lung neoplasm malignant
  2. DEXAMETHASONE [Suspect]
     Active Substance: DEXAMETHASONE
     Indication: Metastases to central nervous system
  3. ACYCLOVIR [Suspect]
     Active Substance: ACYCLOVIR
     Indication: Herpes simplex encephalitis
  4. GEFITINIB [Concomitant]
     Active Substance: GEFITINIB
     Indication: Lung neoplasm malignant
  5. GEFITINIB [Concomitant]
     Active Substance: GEFITINIB
     Indication: Metastases to central nervous system
  6. AFATINIB [Concomitant]
     Active Substance: AFATINIB
     Indication: Lung neoplasm malignant
  7. AFATINIB [Concomitant]
     Active Substance: AFATINIB
     Indication: Metastases to central nervous system

REACTIONS (2)
  - Herpes simplex encephalitis [Fatal]
  - Drug ineffective [Fatal]
